FAERS Safety Report 22941292 (Version 2)
Quarter: 2023Q4

REPORT INFORMATION
  Report Type: Spontaneous
  Country: DE (occurrence: DE)
  Receive Date: 20230913
  Receipt Date: 20231016
  Transmission Date: 20240110
  Serious: Yes (Hospitalization, Other)
  Sender: FDA-Public Use
  Company Number: DE-DCGMA-23201813

PATIENT
  Age: 61 Year
  Sex: Male
  Weight: 105 kg

DRUGS (5)
  1. BUPROPION [Suspect]
     Active Substance: BUPROPION
     Indication: Depression
     Dates: start: 20220428, end: 20220428
  2. BUPROPION [Suspect]
     Active Substance: BUPROPION
     Dates: start: 20211214, end: 20220428
  3. INFLUENZA VIRUS VACCINE QUADRIVALENT TYPE A+B [Suspect]
     Active Substance: INFLUENZA VIRUS VACCINE QUADRIVALENT TYPE A+B
     Indication: Immunisation
     Dosage: ADMINISTERED A FEW WEEKS BEFORE THE EVENT. EFLUELDA 2021/2022
     Route: 065
  4. TAMSULOSIN [Concomitant]
     Active Substance: TAMSULOSIN
     Indication: Product used for unknown indication
     Dates: start: 20221027
  5. FENTANYL [Concomitant]
     Active Substance: FENTANYL
     Indication: Product used for unknown indication
     Dosage: CHANGE EVERY 3 DAYS
     Dates: start: 20210902

REACTIONS (4)
  - Mouth haemorrhage [Recovered/Resolved]
  - Immune thrombocytopenia [Recovered/Resolved]
  - Epistaxis [Recovered/Resolved]
  - Skin haemorrhage [Recovered/Resolved]

NARRATIVE: CASE EVENT DATE: 20221027
